FAERS Safety Report 9782719 (Version 1)
Quarter: 2013Q4

REPORT INFORMATION
  Report Type: Spontaneous
  Country: GB (occurrence: None)
  Receive Date: 20131220
  Receipt Date: 20131220
  Transmission Date: 20140711
  Serious: Yes (Other)
  Sender: FDA-Public Use
  Company Number: AUR-APL-2013-10482

PATIENT
  Age: 40 Year
  Sex: Female

DRUGS (11)
  1. FLUCONAZOLE (FLUCONAZOLE) [Suspect]
     Indication: OESOPHAGEAL CANDIDIASIS
     Dosage: 200 MG (200MG, 1 IN 1 D), ORAL
     Route: 048
     Dates: start: 20131117, end: 20131122
  2. CITALOPRAM (CITALOPRAM) [Suspect]
     Indication: DEPRESSION
     Dosage: 20 MG (20MG, 1 IN 1 D), ORAL
     Route: 048
  3. CALCEOS (LEKOVITCA) [Concomitant]
  4. CO-CODAMOL (PANADEINE CO) [Concomitant]
  5. COLECALCIFEROL (COLECALCIFEROL) [Concomitant]
  6. DALTEPARIN (DALTEPARIN) [Concomitant]
  7. FOLIC ACID (FOLIC ACID) [Concomitant]
  8. MORPHINE (MORPHINE) (UNKNOWN) (MORPHINE) [Concomitant]
  9. NEFOPAM (NEFOPAM) [Concomitant]
  10. OMEPRAZOLE (OMEPRAZOLE) [Concomitant]
  11. SULFASALAZINE (SULFASALAZINE) [Concomitant]

REACTIONS (3)
  - Hallucinations, mixed [None]
  - Drug interaction [None]
  - Drug level increased [None]
